FAERS Safety Report 8377929-5 (Version None)
Quarter: 2012Q2

REPORT INFORMATION
  Report Type: 
  Country: None (occurrence: None)
  Receive Date: 20120522
  Receipt Date: 20120507
  Transmission Date: 20120825
  Serious: Yes (Other)
  Sender: FDA-Public Use
  Company Number: CHPA2012US010627

PATIENT
  Age: 65 Year
  Sex: Male

DRUGS (1)
  1. EXCEDRIN TENSION HEADACHE CAPLETS [Suspect]
     Indication: PAIN
     Dosage: 3 DF AT ONCE, QD
     Route: 048
     Dates: end: 20120301

REACTIONS (6)
  - OFF LABEL USE [None]
  - INCORRECT DOSE ADMINISTERED [None]
  - CARPAL TUNNEL SYNDROME [None]
  - INCORRECT DRUG ADMINISTRATION DURATION [None]
  - ARTHRITIS [None]
  - FEELING ABNORMAL [None]
